FAERS Safety Report 24037053 (Version 1)
Quarter: 2024Q3

REPORT INFORMATION
  Report Type: Report from Study
  Country: CA (occurrence: CA)
  Receive Date: 20240701
  Receipt Date: 20240701
  Transmission Date: 20241016
  Serious: Yes (Other)
  Sender: JOHNSON AND JOHNSON
  Company Number: CA-JNJFOC-20231160798

PATIENT
  Age: 40 Year
  Sex: Male

DRUGS (1)
  1. REMICADE [Suspect]
     Active Substance: INFLIXIMAB
     Indication: Crohn^s disease
     Route: 041
     Dates: start: 20190828

REACTIONS (3)
  - Eye laser surgery [Recovering/Resolving]
  - Eye inflammation [Not Recovered/Not Resolved]
  - Eye excision [Recovering/Resolving]

NARRATIVE: CASE EVENT DATE: 20231101
